FAERS Safety Report 5120495-8 (Version None)
Quarter: 2006Q4

REPORT INFORMATION
  Report Type: 
  Country: None (occurrence: None)
  Receive Date: 20061004
  Receipt Date: 20060822
  Transmission Date: 20070319
  Serious: Yes (Disabling)
  Sender: FDA-Public Use
  Company Number: DE-SANOFI-SYNTHELABO-A01200606825

PATIENT
  Sex: Male

DRUGS (1)
  1. ISCOVER [Suspect]
     Indication: CEREBROVASCULAR ACCIDENT
     Route: 048
     Dates: start: 20060501

REACTIONS (2)
  - FUNGAL SKIN INFECTION [None]
  - SKIN EXFOLIATION [None]
